FAERS Safety Report 20660448 (Version 1)
Quarter: 2022Q1

REPORT INFORMATION
  Report Type: Spontaneous
  Country: US (occurrence: US)
  Receive Date: 20220331
  Receipt Date: 20220331
  Transmission Date: 20220423
  Serious: No
  Sender: FDA-Public Use
  Company Number: US-NOVAST LABORATORIES INC.-2021NOV000354

PATIENT

DRUGS (1)
  1. METOPROLOL SUCCINATE [Suspect]
     Active Substance: METOPROLOL SUCCINATE
     Indication: Tachycardia
     Dosage: 1 TABLET
     Route: 065

REACTIONS (3)
  - Blood glucose increased [Recovered/Resolved]
  - Nervousness [Unknown]
  - Product use in unapproved indication [Unknown]
